FAERS Safety Report 5770035-5 (Version None)
Quarter: 2008Q2

REPORT INFORMATION
  Report Type: 
  Country: None (occurrence: None)
  Receive Date: 20080613
  Receipt Date: 20080416
  Transmission Date: 20081010
  Serious: No
  Sender: FDA-Public Use
  Company Number: US-ABBOTT-08P-163-0447593-00

PATIENT
  Sex: Female

DRUGS (3)
  1. HUMIRA [Suspect]
     Indication: CROHN'S DISEASE
     Dosage: X1
     Route: 058
     Dates: start: 20080320, end: 20080320
  2. HUMIRA [Suspect]
     Dosage: X1
     Route: 058
     Dates: start: 20080403, end: 20080403
  3. HUMIRA [Suspect]
     Route: 058
     Dates: start: 20080417

REACTIONS (4)
  - FATIGUE [None]
  - INJECTION SITE BRUISING [None]
  - INSOMNIA [None]
  - NIGHTMARE [None]
